FAERS Safety Report 17821365 (Version 1)
Quarter: 2020Q2

REPORT INFORMATION
  Report Type: Spontaneous
  Country: DE (occurrence: DE)
  Receive Date: 20200525
  Receipt Date: 20200525
  Transmission Date: 20200714
  Serious: Yes (Hospitalization, Other)
  Sender: FDA-Public Use
  Company Number: DE-ASTRAZENECA-2020SE66278

PATIENT
  Age: 40 Year
  Sex: Male
  Weight: 99.4 kg

DRUGS (4)
  1. HUMALOG [Concomitant]
     Active Substance: INSULIN LISPRO
     Indication: TYPE 1 DIABETES MELLITUS
     Dosage: ABOUT 62 IU DAILY SINCE ABOUT 4 YEARS
     Route: 058
     Dates: start: 2016
  2. FORXIGA [Suspect]
     Active Substance: DAPAGLIFLOZIN
     Indication: OBESITY
     Route: 048
     Dates: start: 202003, end: 20200502
  3. FORXIGA [Suspect]
     Active Substance: DAPAGLIFLOZIN
     Indication: TYPE 1 DIABETES MELLITUS
     Route: 048
     Dates: start: 202003, end: 20200502
  4. TRESIBA [Concomitant]
     Active Substance: INSULIN DEGLUDEC
     Indication: TYPE 1 DIABETES MELLITUS
     Dosage: 54 IU, DAILY, SINCE ABOUT 2 YEARS
     Route: 058
     Dates: start: 2018

REACTIONS (1)
  - Ketoacidosis [Recovered/Resolved]

NARRATIVE: CASE EVENT DATE: 20200503
